FAERS Safety Report 6297679-9 (Version None)
Quarter: 2009Q3

REPORT INFORMATION
  Report Type: 
  Country: None (occurrence: None)
  Receive Date: 20090805
  Receipt Date: 20090724
  Transmission Date: 20100115
  Serious: Yes (Other)
  Sender: FDA-Public Use
  Company Number: PH-PFIZER INC-2005084492

PATIENT
  Age: 65 Year

DRUGS (1)
  1. CEFOPERAZONE SODIUM, SULBACTAM SODIUM [Suspect]
     Indication: BRONCHOPNEUMONIA
     Dosage: 1.5 G, 2X/DAY
     Route: 017
     Dates: start: 20050602, end: 20050602

REACTIONS (3)
  - DYSPNOEA [None]
  - MOVEMENT DISORDER [None]
  - TREMOR [None]
